FAERS Safety Report 23610815 (Version 1)
Quarter: 2024Q1

REPORT INFORMATION
  Report Type: Spontaneous
  Country: US (occurrence: None)
  Receive Date: 20240307
  Receipt Date: 20240307
  Transmission Date: 20240410
  Serious: Yes (Hospitalization)
  Sender: FDA-Public Use
  Company Number: None

PATIENT
  Sex: Male

DRUGS (3)
  1. PULMOZYME [Suspect]
     Active Substance: DORNASE ALFA
     Indication: Cystic fibrosis
     Dosage: 1MG BID INHALATION
     Route: 055
     Dates: start: 202107
  2. FORTEO [Concomitant]
     Active Substance: TERIPARATIDE
  3. TYVASO DPI TITRAT KIT POW [Concomitant]

REACTIONS (1)
  - Pneumonia [None]
